FAERS Safety Report 13191614 (Version 1)
Quarter: 2017Q1

REPORT INFORMATION
  Report Type: Spontaneous
  Country: US (occurrence: US)
  Receive Date: 20170206
  Receipt Date: 20170206
  Transmission Date: 20170428
  Serious: Yes (Other)
  Sender: FDA-Public Use
  Company Number: None

PATIENT
  Age: 75 Year
  Sex: Female

DRUGS (1)
  1. BEVACIZUMAB [Suspect]
     Active Substance: BEVACIZUMAB
     Indication: NEOVASCULAR AGE-RELATED MACULAR DEGENERATION
     Dosage: OTHER FREQUENCY:EVERY 2 MONTHS;?
     Route: 031
     Dates: start: 20170202, end: 20170202

REACTIONS (2)
  - Vitreous floaters [None]
  - Endophthalmitis [None]

NARRATIVE: CASE EVENT DATE: 20170203
